FAERS Safety Report 15010914 (Version 1)
Quarter: 2018Q2

REPORT INFORMATION
  Report Type: Spontaneous
  Country: US (occurrence: US)
  Receive Date: 20180614
  Receipt Date: 20180614
  Transmission Date: 20180711
  Serious: No
  Sender: FDA-Public Use
  Company Number: US-BAYER-2018-108090

PATIENT
  Age: 60 Year
  Sex: Male

DRUGS (1)
  1. FINACEA [Suspect]
     Active Substance: AZELAIC ACID
     Dosage: 2 DF, UNK
     Route: 061
     Dates: start: 20180610

REACTIONS (3)
  - Burning sensation [None]
  - Skin tightness [None]
  - Erythema [None]
